FAERS Safety Report 4353164-2 (Version None)
Quarter: 2004Q2

REPORT INFORMATION
  Report Type: 
  Country: None (occurrence: None)
  Receive Date: 20040503
  Receipt Date: 20040503
  Transmission Date: 20050107
  Serious: No
  Sender: FDA-Public Use
  Company Number: None

PATIENT
  Age: 83 Year
  Sex: Male

DRUGS (9)
  1. CEFIPIME [Suspect]
     Indication: INFECTION
  2. BACLOFEN [Concomitant]
  3. CLONIDINE HCL [Concomitant]
  4. DOCUSATE [Concomitant]
  5. HALOPERIDOL [Concomitant]
  6. HYDRALAZINE HCL [Concomitant]
  7. INSULIN [Concomitant]
  8. QUETIAPINE [Concomitant]
  9. SIMVASTATIN [Concomitant]

REACTIONS (2)
  - NEPHRITIS INTERSTITIAL [None]
  - RENAL FAILURE ACUTE [None]
